FAERS Safety Report 6642042-1 (Version None)
Quarter: 2010Q1

REPORT INFORMATION
  Report Type: 
  Country: None (occurrence: None)
  Receive Date: 20100319
  Receipt Date: 20100308
  Transmission Date: 20100710
  Serious: Yes (Other)
  Sender: FDA-Public Use
  Company Number: HR-NOVOPROD-302852

PATIENT
  Age: 37 Year
  Sex: Female

DRUGS (6)
  1. LEVEMIR [Suspect]
     Indication: TYPE 1 DIABETES MELLITUS
     Dosage: 28 U, QD
     Route: 058
     Dates: start: 20061108, end: 20091203
  2. NOVORAPID FLEXPEN [Suspect]
     Indication: TYPE 1 DIABETES MELLITUS
     Dosage: 32 U, QD
     Route: 058
     Dates: start: 20030911
  3. INSULATARD [Concomitant]
     Indication: TYPE 1 DIABETES MELLITUS
     Dosage: UNK
     Route: 058
     Dates: start: 20091204
  4. RAMIPRIL [Concomitant]
     Dosage: 2.5 MG, QD
     Dates: start: 20070104
  5. METHYLDOPA [Concomitant]
     Indication: PREGNANCY INDUCED HYPERTENSION
  6. CORDIPIN [Concomitant]
     Indication: PREGNANCY INDUCED HYPERTENSION

REACTIONS (5)
  - ASYMPTOMATIC BACTERIURIA [None]
  - CONDITION AGGRAVATED [None]
  - DIABETIC NEPHROPATHY [None]
  - DRUG EXPOSURE DURING PREGNANCY [None]
  - PREGNANCY INDUCED HYPERTENSION [None]
